FAERS Safety Report 8252294-2 (Version None)
Quarter: 2012Q2

REPORT INFORMATION
  Report Type: 
  Country: None (occurrence: None)
  Receive Date: 20120402
  Receipt Date: 20111011
  Transmission Date: 20120825
  Serious: No
  Sender: FDA-Public Use
  Company Number: US-ABBOTT-11P-163-0865228-00

PATIENT
  Sex: Male
  Weight: 122.58 kg

DRUGS (7)
  1. ANDROGEL [Suspect]
     Indication: BLOOD TESTOSTERONE DECREASED
     Route: 061
     Dates: start: 20060101, end: 20060101
  2. ANDROGEL [Suspect]
     Route: 061
     Dates: start: 20110101
  3. ALLOPURINOL [Concomitant]
     Indication: BLOOD URIC ACID INCREASED
  4. SYNTHROID [Concomitant]
     Indication: HYPOTHYROIDISM
  5. LISINOPRIL [Concomitant]
     Indication: HYPERTENSION
  6. FEXOFENADINE [Concomitant]
     Indication: HYPERSENSITIVITY
  7. GEMFIBROZIL [Concomitant]
     Indication: BLOOD TRIGLYCERIDES INCREASED

REACTIONS (3)
  - SPERM CONCENTRATION DECREASED [None]
  - MALAISE [None]
  - HYPERHIDROSIS [None]
